FAERS Safety Report 4473143-4 (Version None)
Quarter: 2004Q4

REPORT INFORMATION
  Report Type: 
  Country: None (occurrence: None)
  Receive Date: 20041008
  Receipt Date: 20040927
  Transmission Date: 20050328
  Serious: Yes (Hospitalization)
  Sender: FDA-Public Use
  Company Number: K200401468

PATIENT
  Age: 36 Year
  Sex: Male

DRUGS (1)
  1. SEPTRA [Suspect]
     Indication: BONE INFECTION
     Dates: start: 20040616

REACTIONS (12)
  - APATHY [None]
  - CHILLS [None]
  - DEPRESSED LEVEL OF CONSCIOUSNESS [None]
  - ERYTHEMA MULTIFORME [None]
  - HEADACHE [None]
  - HERPES ZOSTER [None]
  - MALAISE [None]
  - PNEUMONIA [None]
  - PYREXIA [None]
  - RASH PUSTULAR [None]
  - RASH VESICULAR [None]
  - RESPIRATORY FAILURE [None]
